FAERS Safety Report 4292593-2 (Version None)
Quarter: 2004Q1

REPORT INFORMATION
  Report Type: 
  Country: None (occurrence: None)
  Receive Date: 20040126
  Receipt Date: 20031112
  Transmission Date: 20041129
  Serious: No
  Sender: FDA-Public Use
  Company Number: USA031152491

PATIENT
  Age: 89 Year
  Sex: Female

DRUGS (2)
  1. FORTEO [Suspect]
  2. ATENOLOL [Concomitant]

REACTIONS (3)
  - BACK PAIN [None]
  - BLOOD PRESSURE INCREASED [None]
  - RASH PRURITIC [None]
